FAERS Safety Report 23705019 (Version 1)
Quarter: 2024Q2

REPORT INFORMATION
  Report Type: Report from Study
  Country: IT (occurrence: IT)
  Receive Date: 20240404
  Receipt Date: 20240404
  Transmission Date: 20240716
  Serious: Yes (Other)
  Sender: FDA-Public Use
  Company Number: IT-UCBSA-2022058729

PATIENT
  Sex: Female

DRUGS (2)
  1. NEUPRO [Suspect]
     Active Substance: ROTIGOTINE
     Indication: Parkinsonism
     Dosage: 2 MILLIGRAM, ONCE DAILY (QD)
     Route: 062
     Dates: start: 202208
  2. NEUPRO [Suspect]
     Active Substance: ROTIGOTINE
     Dosage: 4 MILLIGRAM, ONCE DAILY (QD) (28 PATCHES)
     Route: 062

REACTIONS (14)
  - Dementia [Unknown]
  - Tremor [Not Recovered/Not Resolved]
  - Jaw disorder [Unknown]
  - Anal incontinence [Unknown]
  - Application site erythema [Unknown]
  - Application site pruritus [Unknown]
  - Dyspnoea [Unknown]
  - Dysphagia [Unknown]
  - Hiatus hernia [Unknown]
  - Drug intolerance [Unknown]
  - Product dose omission issue [Unknown]
  - Insurance issue [Unknown]
  - Therapy interrupted [Unknown]
  - Product use in unapproved indication [Unknown]

NARRATIVE: CASE EVENT DATE: 20220101
